FAERS Safety Report 16877905 (Version 1)
Quarter: 2019Q4

REPORT INFORMATION
  Report Type: Spontaneous
  Country: US (occurrence: US)
  Receive Date: 20191002
  Receipt Date: 20191002
  Transmission Date: 20200122
  Serious: No
  Sender: FDA-Public Use
  Company Number: US-GILEAD-2019-0431261

PATIENT
  Age: 60 Year
  Sex: Female

DRUGS (11)
  1. CARAFATE [Concomitant]
     Active Substance: SUCRALFATE
  2. VOSEVI [Suspect]
     Active Substance: SOFOSBUVIR\VELPATASVIR\VOXILAPREVIR
     Indication: CHRONIC HEPATITIS C
     Dosage: 1 DOSAGE FORM, QD
     Route: 048
     Dates: start: 201909
  3. ZINC. [Concomitant]
     Active Substance: ZINC
  4. COLACE [Concomitant]
     Active Substance: DOCUSATE SODIUM
  5. ALBUTEROL SULFATE. [Concomitant]
     Active Substance: ALBUTEROL SULFATE
  6. LACTULOSE. [Concomitant]
     Active Substance: LACTULOSE
  7. METHYLPREDNISOLONE. [Concomitant]
     Active Substance: METHYLPREDNISOLONE
  8. CLOTRIMAZOLE. [Concomitant]
     Active Substance: CLOTRIMAZOLE
  9. FOLIC ACID. [Concomitant]
     Active Substance: FOLIC ACID
  10. THERAPEUTIC M [Concomitant]
  11. VITAMIN B1 [Concomitant]
     Active Substance: THIAMINE HYDROCHLORIDE

REACTIONS (2)
  - Fatigue [Not Recovered/Not Resolved]
  - Headache [Not Recovered/Not Resolved]
